FAERS Safety Report 11480407 (Version 2)
Quarter: 2015Q3

REPORT INFORMATION
  Report Type: Report from Study
  Country: CA (occurrence: CA)
  Receive Date: 20150909
  Receipt Date: 20150917
  Transmission Date: 20151125
  Serious: Yes (Other)
  Sender: FDA-Public Use
  Company Number: CA-JNJFOC-20150903826

PATIENT
  Age: 26 Year
  Sex: Female
  Weight: 52.8 kg

DRUGS (1)
  1. REMICADE [Suspect]
     Active Substance: INFLIXIMAB
     Indication: COLITIS ULCERATIVE
     Route: 042

REACTIONS (3)
  - Colitis [Recovering/Resolving]
  - Hereditary angioedema [Unknown]
  - Tonsillitis [Unknown]

NARRATIVE: CASE EVENT DATE: 20150809
